FAERS Safety Report 5781454-5 (Version None)
Quarter: 2008Q2

REPORT INFORMATION
  Report Type: 
  Country: None (occurrence: None)
  Receive Date: 20080623
  Receipt Date: 20070622
  Transmission Date: 20081010
  Serious: No
  Sender: FDA-Public Use
  Company Number: US-ASTRAZENECA-2007UW07286

PATIENT
  Age: 9 Year
  Sex: Female
  Weight: 25.4 kg

DRUGS (5)
  1. ENTOCORT EC [Suspect]
     Indication: CROHN'S DISEASE
     Route: 048
  2. ENTOCORT EC [Suspect]
     Route: 048
  3. PREVACID [Concomitant]
  4. SINGULAIR [Concomitant]
  5. RENACAID [Concomitant]

REACTIONS (3)
  - AMNESIA [None]
  - CONFUSIONAL STATE [None]
  - NERVOUS SYSTEM DISORDER [None]
